FAERS Safety Report 10682549 (Version 2)
Quarter: 2014Q4

REPORT INFORMATION
  Report Type: Report from Study
  Country: US (occurrence: US)
  Receive Date: 20141230
  Receipt Date: 20141230
  Transmission Date: 20150529
  Serious: Yes (Hospitalization)
  Sender: FDA-Public Use
  Company Number: US-SA-2014SA015336

PATIENT
  Age: 72 Year
  Sex: Female

DRUGS (12)
  1. ADVAIR HFA [Concomitant]
     Active Substance: FLUTICASONE PROPIONATE\SALMETEROL XINAFOATE
  2. ANTIHYPERTENSIVES [Concomitant]
     Active Substance: UNSPECIFIED INGREDIENT
  3. LOSARTAN POTASSIUM W/HYDROCHLOROTHIAZIDE [Concomitant]
     Active Substance: HYDROCHLOROTHIAZIDE\LOSARTAN POTASSIUM
  4. FLUTICASONE [Concomitant]
     Active Substance: FLUTICASONE\FLUTICASONE PROPIONATE
  5. LASIX [Concomitant]
     Active Substance: FUROSEMIDE
  6. PHENERGAN [Concomitant]
     Active Substance: PROMETHAZINE HYDROCHLORIDE
  7. AUBAGIO [Suspect]
     Active Substance: TERIFLUNOMIDE
     Indication: MULTIPLE SCLEROSIS
     Route: 048
     Dates: start: 20140101, end: 20141222
  8. VITAMIN D [Concomitant]
     Active Substance: CHOLECALCIFEROL
  9. THYROID THERAPY [Concomitant]
     Active Substance: UNSPECIFIED INGREDIENT
  10. TEGRETOL [Concomitant]
     Active Substance: CARBAMAZEPINE
  11. OMEPRAZOLE. [Concomitant]
     Active Substance: OMEPRAZOLE
  12. NEXIUM [Concomitant]
     Active Substance: ESOMEPRAZOLE MAGNESIUM

REACTIONS (12)
  - Faeces soft [Unknown]
  - Sleep disorder [Unknown]
  - Nausea [Unknown]
  - Abdominal discomfort [Not Recovered/Not Resolved]
  - Abnormal dreams [Not Recovered/Not Resolved]
  - Paraesthesia [Unknown]
  - Thrombosis [Unknown]
  - Diarrhoea [Not Recovered/Not Resolved]
  - Burning sensation [Unknown]
  - Urinary tract infection [Unknown]
  - Decreased appetite [Unknown]
  - Dysgraphia [Unknown]

NARRATIVE: CASE EVENT DATE: 2014
